FAERS Safety Report 6437692-1 (Version None)
Quarter: 2009Q4

REPORT INFORMATION
  Report Type: 
  Country: None (occurrence: None)
  Receive Date: 20091112
  Receipt Date: 20091102
  Transmission Date: 20100525
  Serious: Yes (Hospitalization, Other)
  Sender: FDA-Public Use
  Company Number: US-JNJFOC-20091001151

PATIENT
  Sex: Female
  Weight: 61.69 kg

DRUGS (4)
  1. REMICADE [Suspect]
     Indication: RHEUMATOID ARTHRITIS
     Route: 042
     Dates: end: 20090501
  2. METHOTREXATE [Concomitant]
  3. LEVOTHYROXINE SODIUM [Concomitant]
     Indication: THYROID HORMONE REPLACEMENT THERAPY
  4. PREDNISONE [Concomitant]

REACTIONS (6)
  - CHEILITIS [None]
  - DYSGEUSIA [None]
  - PERIORBITAL OEDEMA [None]
  - SWELLING FACE [None]
  - TYPE IV HYPERSENSITIVITY REACTION [None]
  - URTICARIA [None]
